FAERS Safety Report 7680946-1 (Version None)
Quarter: 2011Q3

REPORT INFORMATION
  Report Type: 
  Country: None (occurrence: None)
  Receive Date: 20110809
  Receipt Date: 20110728
  Transmission Date: 20111222
  Serious: Yes (Death, Hospitalization)
  Sender: FDA-Public Use
  Company Number: 2011MA010749

PATIENT
  Age: 51 Year
  Sex: Male

DRUGS (37)
  1. EZETIMIBE [Concomitant]
  2. ASCORBIC ACID [Concomitant]
  3. PRAVACHOL [Concomitant]
  4. TOREMIDE [Concomitant]
  5. LANOXIN [Concomitant]
  6. DIGOXIN [Suspect]
     Indication: ATRIAL FIBRILLATION
     Dosage: .25 MG;QD;O
     Dates: start: 20060101, end: 20080301
  7. DIGOXIN [Suspect]
     Indication: CARDIAC FAILURE CONGESTIVE
     Dosage: .25 MG;QD;O
     Dates: start: 20060101, end: 20080301
  8. METOLAZONE [Concomitant]
  9. SPIRONOLACTONE [Concomitant]
  10. GLYCOLAX [Concomitant]
  11. FLONASE [Concomitant]
  12. HUMALOG [Concomitant]
  13. BENADRYL [Concomitant]
  14. PREGABALIN [Concomitant]
  15. ULTRAM [Concomitant]
  16. HYDROCHLOROTHIAZIDE [Concomitant]
  17. REGLAN [Concomitant]
  18. LANTUS [Concomitant]
  19. COREG [Concomitant]
  20. NEXIUM [Concomitant]
  21. TRAMADOL HCL [Concomitant]
  22. GLUCOSAMINE [Concomitant]
  23. LORTAB [Concomitant]
  24. AMIODARONE HCL [Concomitant]
  25. LISINOPRIL [Concomitant]
  26. LASIX [Concomitant]
  27. TOPROL-XL [Concomitant]
  28. ALBUTEROL SULFATE AUTOHALER [Concomitant]
  29. ACTIGALL [Concomitant]
  30. ALLOPURINOL [Concomitant]
  31. METOCLOPRAMIDE [Concomitant]
  32. OMACOR [Concomitant]
  33. POTASSIUM [Concomitant]
  34. MICRONASE [Concomitant]
  35. WARFARIN SODIUM [Concomitant]
  36. ZOLOFT [Concomitant]
  37. PROMETHAZINE [Concomitant]

REACTIONS (38)
  - CARDIOMYOPATHY [None]
  - VOMITING [None]
  - RETCHING [None]
  - HYPOTENSION [None]
  - WEIGHT INCREASED [None]
  - REFUSAL OF TREATMENT BY PATIENT [None]
  - ATRIAL TACHYCARDIA [None]
  - TREATMENT NONCOMPLIANCE [None]
  - HYPERNATRAEMIA [None]
  - PALPITATIONS [None]
  - ATRIAL FIBRILLATION [None]
  - ASTHENIA [None]
  - CHEST PAIN [None]
  - MITRAL VALVE INCOMPETENCE [None]
  - DIZZINESS [None]
  - BILIARY DYSKINESIA [None]
  - DILATATION VENTRICULAR [None]
  - DYSPNOEA [None]
  - ABDOMINAL DISCOMFORT [None]
  - ABDOMINAL PAIN [None]
  - SWELLING [None]
  - CONDITION AGGRAVATED [None]
  - DYSPEPSIA [None]
  - LEFT ATRIAL DILATATION [None]
  - LETHARGY [None]
  - AORTIC VALVE INCOMPETENCE [None]
  - CARDIAC FAILURE CONGESTIVE [None]
  - RECTAL HAEMORRHAGE [None]
  - HYPERSOMNIA [None]
  - INSOMNIA [None]
  - RENAL FAILURE CHRONIC [None]
  - HYPERKALAEMIA [None]
  - NAUSEA [None]
  - INJURY [None]
  - TRICUSPID VALVE INCOMPETENCE [None]
  - FATIGUE [None]
  - DECREASED APPETITE [None]
  - BACK PAIN [None]
